FAERS Safety Report 9322085 (Version 1)
Quarter: 2013Q2

REPORT INFORMATION
  Report Type: Spontaneous
  Country: US (occurrence: None)
  Receive Date: 20130529
  Receipt Date: 20130529
  Transmission Date: 20140414
  Serious: No
  Sender: FDA-Public Use
  Company Number: 2013P1006269

PATIENT
  Age: 46 Year
  Sex: Female

DRUGS (2)
  1. INFUMORPH [Suspect]
     Indication: PAIN
     Route: 037
  2. PRIALT [Suspect]
     Indication: PAIN
     Route: 037

REACTIONS (5)
  - Mass [None]
  - Inflammation [None]
  - Device dislocation [None]
  - Overdose [None]
  - Therapeutic product ineffective [None]
